FAERS Safety Report 16443799 (Version 1)
Quarter: 2019Q2

REPORT INFORMATION
  Report Type: Report from Study
  Country: IT (occurrence: IT)
  Receive Date: 20190618
  Receipt Date: 20190618
  Transmission Date: 20190711
  Serious: Yes (Hospitalization)
  Sender: FDA-Public Use
  Company Number: IT-TEVA-2019-IT-1064614

PATIENT
  Age: 72 Year
  Sex: Male

DRUGS (9)
  1. ASCRIPTIN [Suspect]
     Active Substance: ASPIRIN
     Indication: ANTIPLATELET THERAPY
     Route: 048
     Dates: start: 20140101, end: 20190526
  2. ACICLOVIR [Suspect]
     Active Substance: ACYCLOVIR
     Indication: HERPES SIMPLEX
     Route: 048
     Dates: start: 20190518
  3. EUTIROX 25 MICROGRAMMI COMPRESSE [Concomitant]
     Active Substance: LEVOTHYROXINE SODIUM
  4. ROCALTROL 0,25 MCG CAPSULE MOLLI [Concomitant]
  5. MOTILIUM [Concomitant]
     Active Substance: DOMPERIDONE
  6. REPAGLINIDE ACTAVIS [Concomitant]
     Active Substance: REPAGLINIDE
  7. ANTRA 20 MG CAPSULE RIGIDE GASTRORESISTENTI [Concomitant]
  8. DEURSIL [Concomitant]
     Active Substance: URSODIOL
  9. TRAJENTA 5?MG FILM-COATED TABLETS [Concomitant]

REACTIONS (2)
  - Rectal haemorrhage [Recovering/Resolving]
  - Anaemia [Recovering/Resolving]

NARRATIVE: CASE EVENT DATE: 20190526
